FAERS Safety Report 9089980 (Version 1)
Quarter: 2013Q1

REPORT INFORMATION
  Report Type: Report from Study
  Country: US (occurrence: US)
  Receive Date: 20130218
  Receipt Date: 20130218
  Transmission Date: 20140127
  Serious: No
  Sender: FDA-Public Use
  Company Number: US-ABBOTT-12P-163-0929030-00

PATIENT
  Age: 38 Year
  Sex: Male
  Weight: 108.96 kg

DRUGS (5)
  1. SIMCOR 500MG/20MG [Suspect]
     Indication: BLOOD CHOLESTEROL INCREASED
     Dosage: 500/20 MG, AT BEDTIME
     Route: 048
  2. MULTIVITAMIN [Concomitant]
     Indication: PRODUCT USED FOR UNKNOWN INDICATION
     Route: 048
  3. FISH OIL [Concomitant]
     Indication: PRODUCT USED FOR UNKNOWN INDICATION
     Route: 048
  4. ASPIRIN [Concomitant]
     Indication: PRODUCT USED FOR UNKNOWN INDICATION
     Dosage: 30 MINUTES, PRIOR TO DOSE OF SIMCOR
     Route: 048
  5. HCTZ [Concomitant]
     Indication: PRODUCT USED FOR UNKNOWN INDICATION
     Route: 048

REACTIONS (4)
  - Flushing [Recovered/Resolved]
  - Skin burning sensation [Recovered/Resolved]
  - Urticaria [Recovered/Resolved]
  - Rash papular [Recovered/Resolved]
